FAERS Safety Report 7519216-0 (Version None)
Quarter: 2011Q2

REPORT INFORMATION
  Report Type: 
  Country: None (occurrence: None)
  Receive Date: 20110602
  Receipt Date: 20110426
  Transmission Date: 20111010
  Serious: No
  Sender: FDA-Public Use
  Company Number: US-BRISTOL-MYERS SQUIBB COMPANY-15562655

PATIENT
  Age: 50 Year
  Sex: Female

DRUGS (4)
  1. ASPIRIN [Concomitant]
  2. KOMBIGLYZE XR [Suspect]
     Indication: DIABETES MELLITUS MANAGEMENT
     Dosage: 2.5/1000
     Route: 048
     Dates: start: 20110201
  3. VITAMIN D [Concomitant]
  4. LEVEMIR [Concomitant]

REACTIONS (1)
  - RASH PRURITIC [None]
